FAERS Safety Report 18754538 (Version 2)
Quarter: 2021Q1

REPORT INFORMATION
  Report Type: Report from Study
  Country: None (occurrence: TW)
  Receive Date: 20210119
  Receipt Date: 20210203
  Transmission Date: 20210419
  Serious: Yes (Death, Hospitalization)
  Sender: FDA-Public Use
  Company Number: TW-ABBVIE-21K-153-3734034-00

PATIENT
  Sex: Male
  Weight: 58 kg

DRUGS (1)
  1. HUMIRA [Suspect]
     Active Substance: ADALIMUMAB
     Indication: COLITIS ULCERATIVE
     Route: 058
     Dates: start: 20190225, end: 20210104

REACTIONS (12)
  - Hepatic function abnormal [Fatal]
  - International normalised ratio increased [Unknown]
  - Hepatitis B [Unknown]
  - Aspartate aminotransferase increased [Not Recovered/Not Resolved]
  - Blood bilirubin increased [Fatal]
  - Diarrhoea [Fatal]
  - Bilirubin conjugated increased [Unknown]
  - Alanine aminotransferase increased [Not Recovered/Not Resolved]
  - Ammonia increased [Fatal]
  - Blood albumin decreased [Unknown]
  - Prothrombin level increased [Unknown]
  - Jaundice [Fatal]

NARRATIVE: CASE EVENT DATE: 202101
